FAERS Safety Report 9405200 (Version 2)
Quarter: 2013Q3

REPORT INFORMATION
  Report Type: Spontaneous
  Country: DK (occurrence: DK)
  Receive Date: 20130717
  Receipt Date: 20130808
  Transmission Date: 20140515
  Serious: Yes (Death, Disabling, Other)
  Sender: FDA-Public Use
  Company Number: PHHY2012DK023442

PATIENT
  Age: 15 Year
  Sex: Female
  Weight: 34 kg

DRUGS (4)
  1. METHOTREXATE SANDOZ [Suspect]
     Indication: JUVENILE IDIOPATHIC ARTHRITIS
     Dosage: 10-15 MG / SQUARE METER WEEKLY DOSE
     Route: 048
     Dates: start: 20101020, end: 20111213
  2. ENBREL [Suspect]
     Indication: JUVENILE IDIOPATHIC ARTHRITIS
     Dosage: 50 MG, QW
     Route: 058
     Dates: start: 20101210, end: 20120206
  3. CYCLOPHOSPHAMIDE [Suspect]
     Indication: INTERSTITIAL LUNG DISEASE
  4. PREDNISOLON [Concomitant]
     Indication: JUVENILE IDIOPATHIC ARTHRITIS
     Dates: start: 20101020, end: 201103

REACTIONS (7)
  - Cardiac arrest [Fatal]
  - Septic shock [Fatal]
  - Superinfection [Fatal]
  - Pneumothorax [Not Recovered/Not Resolved]
  - Interstitial lung disease [Not Recovered/Not Resolved]
  - Dyspnoea exertional [Not Recovered/Not Resolved]
  - Pneumonia [Not Recovered/Not Resolved]
